FAERS Safety Report 20245706 (Version 2)
Quarter: 2022Q1

REPORT INFORMATION
  Report Type: Report from Study
  Country: CA (occurrence: CA)
  Receive Date: 20211229
  Receipt Date: 20220215
  Transmission Date: 20220423
  Serious: Yes (Death, Hospitalization)
  Sender: FDA-Public Use
  Company Number: CA-NOVARTISPH-NVSC2021CA204848

PATIENT
  Age: 83 Year
  Sex: Male

DRUGS (2)
  1. ELTROMBOPAG OLAMINE [Suspect]
     Active Substance: ELTROMBOPAG OLAMINE
     Indication: Aplastic anaemia
     Dosage: 150 MG, QD
     Route: 048
     Dates: start: 20201208
  2. ELTROMBOPAG OLAMINE [Suspect]
     Active Substance: ELTROMBOPAG OLAMINE
     Dosage: 150 MG, QD
     Route: 048
     Dates: start: 20201220

REACTIONS (12)
  - Death [Fatal]
  - Head injury [Unknown]
  - Balance disorder [Unknown]
  - Depressed mood [Unknown]
  - Fall [Unknown]
  - Swelling face [Unknown]
  - Eye swelling [Unknown]
  - Contusion [Unknown]
  - Mastication disorder [Unknown]
  - Hypoglycaemia [Unknown]
  - Tremor [Unknown]
  - Drug intolerance [Unknown]

NARRATIVE: CASE EVENT DATE: 20211226
